FAERS Safety Report 5301634-2 (Version None)
Quarter: 2007Q1

REPORT INFORMATION
  Report Type: 
  Country: None (occurrence: None)
  Receive Date: 20070201
  Receipt Date: 20061218
  Transmission Date: 20070707
  Serious: No
  Sender: FDA-Public Use
  Company Number: 2006PV027144

PATIENT
  Sex: Female

DRUGS (2)
  1. BYETTA [Suspect]
     Indication: DRUG USE FOR UNKNOWN INDICATION
     Dosage: ; BID; SC
     Route: 058
  2. ORAL ANTIDIABETICS [Concomitant]

REACTIONS (1)
  - BLOOD GLUCOSE ABNORMAL [None]
